FAERS Safety Report 9733350 (Version 1)
Quarter: 2013Q4

REPORT INFORMATION
  Report Type: Spontaneous
  Country: US (occurrence: None)
  Receive Date: 20131204
  Receipt Date: 20131204
  Transmission Date: 20140711
  Serious: Yes (Hospitalization)
  Sender: FDA-Public Use
  Company Number: None

PATIENT
  Age: 65 Year
  Sex: Male
  Weight: 74.39 kg

DRUGS (1)
  1. SUNITINIB MALATE [Suspect]
     Dates: start: 20131104, end: 20131125

REACTIONS (1)
  - Lipase increased [None]
